FAERS Safety Report 5097414-6 (Version None)
Quarter: 2006Q3

REPORT INFORMATION
  Report Type: 
  Country: None (occurrence: None)
  Receive Date: 20060901
  Receipt Date: 20060823
  Transmission Date: 20061208
  Serious: Yes (Hospitalization, Other)
  Sender: FDA-Public Use
  Company Number: 2006-02154

PATIENT
  Age: 51 Year
  Sex: Female
  Weight: 61 kg

DRUGS (2)
  1. VELCADE [Suspect]
     Indication: NON-SMALL CELL LUNG CANCER
     Dosage: 1.6 MG/M2, IV BOLUS
     Route: 040
     Dates: start: 20060802, end: 20060803
  2. TAXOTERE [Suspect]
     Indication: NON-SMALL CELL LUNG CANCER
     Dosage: 75.00 MG/M2, INTRAVENOUS
     Route: 042
     Dates: start: 20060802, end: 20060802

REACTIONS (4)
  - GRANULOCYTES ABNORMAL [None]
  - NEUTROPHIL COUNT DECREASED [None]
  - PNEUMONIA [None]
  - WHITE BLOOD CELL DISORDER [None]
